FAERS Safety Report 10419581 (Version 1)
Quarter: 2014Q2

REPORT INFORMATION
  Report Type: Spontaneous
  Country: US (occurrence: None)
  Receive Date: 20140625
  Receipt Date: 20140625
  Transmission Date: 20141212
  Serious: No
  Sender: FDA-Public Use
  Company Number: A-NJ2014-95720

PATIENT
  Age: 78 Year
  Sex: Female

DRUGS (3)
  1. OPSUMIT (MACITENTAN) [Suspect]
     Indication: PULMONARY ARTERIAL HYPERTENSION
     Route: 048
  2. TYVASO (TREPROSTINIL SODIUM) [Concomitant]
  3. WARFARIN (WARFARIN) [Concomitant]

REACTIONS (5)
  - Musculoskeletal pain [None]
  - Myalgia [None]
  - Pain [None]
  - Palpitations [None]
  - Headache [None]
